FAERS Safety Report 4516909-4 (Version None)
Quarter: 2004Q4

REPORT INFORMATION
  Report Type: 
  Country: None (occurrence: None)
  Receive Date: 20041130
  Receipt Date: 20041119
  Transmission Date: 20050328
  Serious: Yes (Hospitalization)
  Sender: FDA-Public Use
  Company Number: 200410599BFR

PATIENT
  Age: 62 Year
  Sex: Male

DRUGS (5)
  1. CIPROFLOXACIN HCL [Suspect]
     Indication: ENTEROBACTER INFECTION
     Dosage: 1500 MG, TOTAL DAILY, ORAL
     Route: 048
     Dates: start: 20040913, end: 20041012
  2. CIPROFLOXACIN HCL [Suspect]
     Indication: INTERVERTEBRAL DISCITIS
     Dosage: 1500 MG, TOTAL DAILY, ORAL
     Route: 048
     Dates: start: 20040913, end: 20041012
  3. SKENAN [Concomitant]
  4. TRAMADOL HCL [Concomitant]
  5. OMEPRAZOLE [Concomitant]

REACTIONS (5)
  - AGITATION [None]
  - DYSKINESIA [None]
  - EUPHORIC MOOD [None]
  - HALLUCINATION, VISUAL [None]
  - TREMOR [None]
